FAERS Safety Report 9813112 (Version 1)
Quarter: 2014Q1

REPORT INFORMATION
  Report Type: Spontaneous
  Country: US (occurrence: None)
  Receive Date: 20140110
  Receipt Date: 20140110
  Transmission Date: 20141002
  Serious: Yes (Disabling)
  Sender: FDA-Public Use
  Company Number: None

PATIENT
  Age: 32 Year
  Sex: Female
  Weight: 61.24 kg

DRUGS (1)
  1. JUNEL [Suspect]
     Indication: MENORRHAGIA
     Dosage: TAKEN BY MOUTH
     Dates: start: 20000101, end: 20130824

REACTIONS (2)
  - Anovulatory cycle [None]
  - Amenorrhoea [None]
